FAERS Safety Report 11892813 (Version 12)
Quarter: 2020Q3

REPORT INFORMATION
  Report Type: Spontaneous
  Country: US (occurrence: US)
  Receive Date: 20160106
  Receipt Date: 20200818
  Transmission Date: 20201102
  Serious: Yes (Other)
  Sender: FDA-Public Use
  Company Number: US-PFIZER INC-2015388526

PATIENT
  Age: 44 Year
  Sex: Male

DRUGS (11)
  1. BOSULIF [Suspect]
     Active Substance: BOSUTINIB MONOHYDRATE
     Dosage: 400 MG, DAILY (TAKE 4 TABLETS OF 100 MG)
     Route: 048
     Dates: start: 201602
  2. BOSULIF [Suspect]
     Active Substance: BOSUTINIB MONOHYDRATE
     Dosage: 500 MG, UNK
  3. MELOXICAM. [Concomitant]
     Active Substance: MELOXICAM
     Dosage: UNK
  4. BOSULIF [Suspect]
     Active Substance: BOSUTINIB MONOHYDRATE
     Indication: CHRONIC MYELOID LEUKAEMIA
     Dosage: 500 MG, UNK
     Dates: start: 20130906
  5. BOSULIF [Suspect]
     Active Substance: BOSUTINIB MONOHYDRATE
     Dosage: 400 MG, DAILY (TAKE 4 TABLETS OF 100 MG)
     Route: 048
     Dates: start: 20160129
  6. BOSULIF [Suspect]
     Active Substance: BOSUTINIB MONOHYDRATE
     Dosage: 400 MG, DAILY (TAKE 4 TABLETS OF 100 MG)
     Route: 048
     Dates: start: 201601, end: 201601
  7. NEURONTIN [Concomitant]
     Active Substance: GABAPENTIN
     Dosage: UNK
  8. ADDERALL [Concomitant]
     Active Substance: AMPHETAMINE ASPARTATE\AMPHETAMINE SULFATE\DEXTROAMPHETAMINE SACCHARATE\DEXTROAMPHETAMINE SULFATE
     Dosage: UNK
  9. FENTANYL. [Concomitant]
     Active Substance: FENTANYL
     Dosage: UNK (FOR 7 YEARS)
  10. BOSULIF [Suspect]
     Active Substance: BOSUTINIB MONOHYDRATE
     Dosage: 1600 MG, DAILY
     Route: 048
     Dates: start: 201602
  11. BUPROPION. [Concomitant]
     Active Substance: BUPROPION
     Dosage: UNK

REACTIONS (17)
  - Product dose omission issue [Unknown]
  - Myalgia [Unknown]
  - Weight increased [Unknown]
  - Scan abnormal [Unknown]
  - Fatigue [Unknown]
  - Insomnia [Unknown]
  - Vomiting [Unknown]
  - Nephrolithiasis [Unknown]
  - Influenza like illness [Unknown]
  - Bone pain [Unknown]
  - Pain [Recovering/Resolving]
  - Dysphonia [Unknown]
  - Asthenia [Unknown]
  - Nausea [Recovering/Resolving]
  - Weight decreased [Unknown]
  - Pyrexia [Recovered/Resolved]
  - Cough [Unknown]
